FAERS Safety Report 7179105-0 (Version None)
Quarter: 2010Q4

REPORT INFORMATION
  Report Type: 
  Country: None (occurrence: None)
  Receive Date: 20101221
  Receipt Date: 20101214
  Transmission Date: 20110411
  Serious: No
  Sender: FDA-Public Use
  Company Number: US-PFIZER INC-2010135715

PATIENT
  Sex: Female
  Weight: 65.317 kg

DRUGS (5)
  1. LYRICA [Suspect]
     Indication: HERPES ZOSTER
     Dosage: 50 MG, 3X/DAY
     Route: 048
     Dates: start: 20101018
  2. LYRICA [Suspect]
     Indication: NEURALGIA
  3. LYRICA [Suspect]
     Indication: POST HERPETIC NEURALGIA
  4. WELLBUTRIN [Concomitant]
     Dosage: 150 MG, UNK
  5. WELLBUTRIN [Concomitant]

REACTIONS (1)
  - MUSCLE TWITCHING [None]
